FAERS Safety Report 7374364-3 (Version None)
Quarter: 2011Q1

REPORT INFORMATION
  Report Type: 
  Country: None (occurrence: None)
  Receive Date: 20110316
  Receipt Date: 20110304
  Transmission Date: 20110831
  Serious: Yes (Hospitalization)
  Sender: FDA-Public Use
  Company Number: DSJ-2011-04650

PATIENT
  Age: 70 Year
  Sex: Female

DRUGS (3)
  1. CHLORTHALIDONE [Suspect]
     Indication: HYPERTENSION
     Dosage: 12.5 MG, ,PER ORAL
     Route: 048
     Dates: start: 20110201
  2. SOTALOL HCL [Suspect]
  3. AMLODIPINE BESYLATE AND OLMESARTAN MEDOXOMIL [Suspect]
     Indication: HYPERTENSION
     Dosage: 40/5 MG (1 IN 1 D), PER ORAL
     Route: 048
     Dates: start: 20110201

REACTIONS (2)
  - BLOOD PRESSURE SYSTOLIC INCREASED [None]
  - CHOLELITHIASIS [None]
